FAERS Safety Report 7427752-0 (Version None)
Quarter: 2011Q2

REPORT INFORMATION
  Report Type: 
  Country: None (occurrence: None)
  Receive Date: 20110421
  Receipt Date: 20110412
  Transmission Date: 20111010
  Serious: Yes (Hospitalization, Other)
  Sender: FDA-Public Use
  Company Number: AU-ELI_LILLY_AND_COMPANY-AU201104003524

PATIENT
  Age: 55 Year
  Sex: Female

DRUGS (1)
  1. CYMBALTA [Suspect]
     Indication: DEPRESSION
     Dosage: 30 MG, QD
     Route: 048

REACTIONS (6)
  - CONVULSION [None]
  - NAUSEA [None]
  - DEHYDRATION [None]
  - BULIMIA NERVOSA [None]
  - RENAL FAILURE ACUTE [None]
  - HYPERKALAEMIA [None]
